FAERS Safety Report 11245753 (Version 2)
Quarter: 2015Q3

REPORT INFORMATION
  Report Type: Spontaneous
  Country: JP (occurrence: JP)
  Receive Date: 20150707
  Receipt Date: 20150806
  Transmission Date: 20151125
  Serious: Yes (Other)
  Sender: FDA-Public Use
  Company Number: JP-SA-2015SA096316

PATIENT
  Age: 57 Year
  Sex: Male
  Weight: 58 kg

DRUGS (13)
  1. ELPLAT [Suspect]
     Active Substance: OXALIPLATIN
     Indication: COLON CANCER
     Route: 041
     Dates: start: 20150327, end: 20150327
  2. TRAMCET [Concomitant]
     Active Substance: ACETAMINOPHEN\TRAMADOL
     Dates: start: 20150417, end: 20150508
  3. CELECOX [Concomitant]
     Active Substance: CELECOXIB
     Dates: start: 20150417, end: 20150508
  4. GASLON [Concomitant]
     Active Substance: IRSOGLADINE MALEATE
     Dates: start: 20150417, end: 20150508
  5. XELODA [Suspect]
     Active Substance: CAPECITABINE
     Indication: COLON CANCER
     Route: 048
     Dates: start: 20150327, end: 20150410
  6. ARTZ [Concomitant]
     Dates: start: 20150424, end: 20150424
  7. ELPLAT [Suspect]
     Active Substance: OXALIPLATIN
     Indication: COLON CANCER
     Route: 041
     Dates: start: 20150306, end: 20150306
  8. ELPLAT [Suspect]
     Active Substance: OXALIPLATIN
     Indication: COLON CANCER
     Route: 041
     Dates: start: 20150508, end: 20150508
  9. XELODA [Suspect]
     Active Substance: CAPECITABINE
     Indication: COLON CANCER
     Route: 048
     Dates: start: 20150508, end: 20150513
  10. DECADRON [Concomitant]
     Active Substance: DEXAMETHASONE
     Dates: start: 20150417, end: 20150417
  11. XELODA [Suspect]
     Active Substance: CAPECITABINE
     Indication: COLON CANCER
     Route: 048
     Dates: start: 20150306, end: 20150320
  12. XYLOCAINE [Concomitant]
     Active Substance: LIDOCAINE HYDROCHLORIDE
     Dates: start: 20150417, end: 20150417
  13. XELODA [Suspect]
     Active Substance: CAPECITABINE
     Indication: COLON CANCER
     Route: 048
     Dates: start: 20150529, end: 20150606

REACTIONS (1)
  - Arthritis [Recovered/Resolved]

NARRATIVE: CASE EVENT DATE: 20150407
